FAERS Safety Report 10874064 (Version 3)
Quarter: 2016Q3

REPORT INFORMATION
  Report Type: Report from Study
  Country: IT (occurrence: IT)
  Receive Date: 20150227
  Receipt Date: 20160728
  Transmission Date: 20161109
  Serious: Yes (Hospitalization, Other)
  Sender: FDA-Public Use
  Company Number: IT-ABBVIE-14P-083-1325579-00

PATIENT
  Sex: Female
  Weight: 80 kg

DRUGS (14)
  1. HEPARIN [Concomitant]
     Active Substance: HEPARIN SODIUM
     Indication: VENOUS THROMBOSIS
     Dosage: 4000 IU
     Route: 058
  2. BRINZOLAMIDE [Concomitant]
     Active Substance: BRINZOLAMIDE
     Indication: GLAUCOMA
     Dosage: 1 DROP
     Route: 061
  3. PRAMIPEXOLE. [Concomitant]
     Active Substance: PRAMIPEXOLE
     Indication: PARKINSON^S DISEASE
     Dosage: 1.05 MG DAILY
     Route: 048
     Dates: start: 20141212
  4. LEVOTHYROXINE. [Concomitant]
     Active Substance: LEVOTHYROXINE
     Indication: HYPOTHYROIDISM
     Dosage: 100 MG
     Route: 048
  5. HEPARIN [Concomitant]
     Active Substance: HEPARIN SODIUM
     Indication: PROPHYLAXIS
  6. KANRENON [Concomitant]
     Indication: CARDIAC FAILURE CONGESTIVE
     Dosage: 25 MG
     Route: 048
  7. LORAZEPAM. [Concomitant]
     Active Substance: LORAZEPAM
     Indication: ANXIETY
     Dosage: 1MGX1
     Route: 048
  8. TAFLUPROST [Concomitant]
     Active Substance: TAFLUPROST
     Indication: GLAUCOMA
     Dosage: 1 DROP
     Route: 061
  9. PREGABALIN. [Concomitant]
     Active Substance: PREGABALIN
     Indication: PAIN
     Dosage: 75 MGX2
     Route: 048
  10. DUODOPA [Suspect]
     Active Substance: CARBIDOPA\LEVODOPA
     Indication: PARKINSON^S DISEASE
     Dosage: CR 4 ML/H
     Route: 050
     Dates: start: 20110902, end: 20141212
  11. QUETIAPINE. [Concomitant]
     Active Substance: QUETIAPINE
     Indication: HALLUCINATION
     Dosage: 25X4 MG DAILY
     Route: 048
     Dates: start: 20141212
  12. LEVODOPA [Concomitant]
     Active Substance: LEVODOPA
     Indication: PARKINSON^S DISEASE
     Dosage: 250X3
     Route: 048
     Dates: start: 20141212
  13. AMOXICILLINE+CLAVULANIC ACID [Concomitant]
     Indication: PNEUMONIA
     Dosage: 1 GX2
     Route: 048
  14. LEVODOPA/CARBIDOPA [Concomitant]
     Active Substance: CARBIDOPA\LEVODOPA
     Indication: PARKINSON^S DISEASE
     Route: 048
     Dates: start: 20141212

REACTIONS (7)
  - Pneumonia aspiration [Recovered/Resolved with Sequelae]
  - Dysphagia [Unknown]
  - Pneumonia [Unknown]
  - Aggression [Unknown]
  - Device issue [Unknown]
  - Dyspnoea [Recovered/Resolved with Sequelae]
  - Hallucination [Unknown]

NARRATIVE: CASE EVENT DATE: 20141006
